FAERS Safety Report 5068018-6 (Version None)
Quarter: 2006Q3

REPORT INFORMATION
  Report Type: 
  Country: None (occurrence: None)
  Receive Date: 20060731
  Receipt Date: 20060717
  Transmission Date: 20061208
  Serious: Yes (Other)
  Sender: FDA-Public Use
  Company Number: 2006090801

PATIENT
  Age: 80 Year
  Sex: Female

DRUGS (15)
  1. LYRICA [Suspect]
     Indication: NEUROPATHY PERIPHERAL
     Dosage: 150 MG (50 MG,3 IN 1 D)
     Dates: start: 20060101
  2. ASPIRIN [Concomitant]
  3. TIAZAC [Concomitant]
  4. LANOXIN [Concomitant]
  5. TENORMIN [Concomitant]
  6. PREMARIN [Concomitant]
  7. XANAX [Concomitant]
  8. PERSANTINE [Concomitant]
  9. SYNTHROID [Concomitant]
  10. OXYCONTIN [Concomitant]
  11. MEXITIL [Concomitant]
  12. DARVOCET-N 100 [Concomitant]
  13. ALL OTHER THERAPEUTIC PRODUCTS [Concomitant]
  14. PREVACID [Concomitant]
  15. POTASSIUM [Concomitant]

REACTIONS (5)
  - MUSCLE SPASMS [None]
  - OEDEMA PERIPHERAL [None]
  - VISION BLURRED [None]
  - WEIGHT DECREASED [None]
  - WEIGHT INCREASED [None]
